FAERS Safety Report 7425960-6 (Version None)
Quarter: 2011Q2

REPORT INFORMATION
  Report Type: 
  Country: None (occurrence: None)
  Receive Date: 20110420
  Receipt Date: 20110411
  Transmission Date: 20111010
  Serious: Yes (Hospitalization)
  Sender: FDA-Public Use
  Company Number: FR-JNJFOC-20110405706

PATIENT
  Sex: Male

DRUGS (8)
  1. DURAGESIC-100 [Suspect]
     Route: 062
  2. TEMESTA [Suspect]
     Indication: PRODUCT USED FOR UNKNOWN INDICATION
     Route: 048
  3. KARDEGIC [Concomitant]
     Route: 065
  4. DURAGESIC-100 [Suspect]
     Indication: PAIN
     Route: 062
  5. ATENOLOL [Concomitant]
     Route: 065
  6. SEROPLEX [Concomitant]
     Route: 065
  7. AVODART [Concomitant]
     Route: 065
  8. COVERSYL [Concomitant]
     Route: 065

REACTIONS (2)
  - COMA [None]
  - MULTIPLE DRUG OVERDOSE [None]
